FAERS Safety Report 8108148-5 (Version None)
Quarter: 2011Q4

REPORT INFORMATION
  Report Type: 
  Country: None (occurrence: None)
  Receive Date: 20111227
  Receipt Date: 20111115
  Transmission Date: 20120403
  Serious: Yes (Other)
  Sender: FDA-Public Use
  Company Number: PHEH2011US06380

PATIENT
  Age: 56 Year
  Sex: Male

DRUGS (6)
  1. CLONAZEPAM [Concomitant]
  2. GILENYA [Suspect]
     Indication: MULTIPLE SCLEROSIS
     Dosage: 0.5 MG, QD, ORAL
     Route: 048
     Dates: start: 20110218, end: 20110902
  3. INSULIN [Concomitant]
  4. ADDERALL 10 [Concomitant]
  5. WELLBUTRIN [Concomitant]
  6. ZOCOR [Concomitant]

REACTIONS (1)
  - MACULAR OEDEMA [None]
